FAERS Safety Report 18432158 (Version 2)
Quarter: 2020Q4

REPORT INFORMATION
  Report Type: Spontaneous
  Country: MX (occurrence: MX)
  Receive Date: 20201027
  Receipt Date: 20201110
  Transmission Date: 20210114
  Serious: Yes (Other)
  Sender: FDA-Public Use
  Company Number: MX-ASTRAZENECA-2020SF39021

PATIENT
  Age: 494 Month
  Sex: Female
  Weight: 62 kg

DRUGS (8)
  1. VALPROIC ACID. [Concomitant]
     Active Substance: VALPROIC ACID
  2. SYDOLIL [Concomitant]
  3. TOPIRAMATE. [Concomitant]
     Active Substance: TOPIRAMATE
  4. ZOMIG [Suspect]
     Active Substance: ZOLMITRIPTAN
     Route: 048
  5. DOLAC [Concomitant]
  6. VOLTAREN AMPULAS [Concomitant]
     Indication: ABORTION
     Route: 030
  7. PROPANOLOL [Suspect]
     Active Substance: PROPRANOLOL HYDROCHLORIDE
     Dosage: 10.0MG UNKNOWN
     Route: 065
  8. SIBELIUM [Concomitant]
     Indication: MIGRAINE
     Route: 048

REACTIONS (9)
  - Dementia [Recovered/Resolved]
  - Migraine [Recovered/Resolved]
  - Abnormal behaviour [Recovered/Resolved]
  - Extrapyramidal disorder [Unknown]
  - Feeling abnormal [Recovered/Resolved]
  - Cognitive disorder [Recovered/Resolved]
  - Pain [Recovered/Resolved]
  - Scar [Unknown]
  - Cerebral microinfarction [Recovered/Resolved]

NARRATIVE: CASE EVENT DATE: 201709
